FAERS Safety Report 4284385-5 (Version None)
Quarter: 2004Q1

REPORT INFORMATION
  Report Type: 
  Country: None (occurrence: None)
  Receive Date: 20040130
  Receipt Date: 20040112
  Transmission Date: 20041129
  Serious: Yes (Other)
  Sender: FDA-Public Use
  Company Number: USA040156333

PATIENT
  Age: 78 Year
  Sex: Female

DRUGS (1)
  1. FORTEO [Suspect]
     Indication: OSTEOPOROSIS
     Dosage: 20 UG/DAY
     Dates: start: 20030101

REACTIONS (4)
  - COLOSTOMY [None]
  - DIALYSIS [None]
  - PHARMACEUTICAL PRODUCT COMPLAINT [None]
  - RENAL DISORDER [None]
